FAERS Safety Report 4652007-7 (Version None)
Quarter: 2005Q2

REPORT INFORMATION
  Report Type: 
  Country: None (occurrence: None)
  Receive Date: 20050504
  Receipt Date: 20050419
  Transmission Date: 20051028
  Serious: Yes (Life-Threatening)
  Sender: FDA-Public Use
  Company Number: IT-BOEHRINGER INGELHEIM PHARMACEUTICALS, INC.-2005-IT-00081IT

PATIENT
  Sex: Female

DRUGS (2)
  1. SPIRIVA [Suspect]
     Indication: CHRONIC OBSTRUCTIVE PULMONARY DISEASE
     Route: 055
     Dates: start: 20050404, end: 20050406
  2. DIGOXIN [Concomitant]

REACTIONS (5)
  - CONSTIPATION [None]
  - DRY EYE [None]
  - DRY MOUTH [None]
  - DYSPNOEA AT REST [None]
  - OCULAR HYPERAEMIA [None]
